FAERS Safety Report 14572726 (Version 2)
Quarter: 2018Q3

REPORT INFORMATION
  Report Type: Spontaneous
  Country: US (occurrence: US)
  Receive Date: 20180226
  Receipt Date: 20180817
  Transmission Date: 20181010
  Serious: No
  Sender: FDA-Public Use
  Company Number: US-STRONGBRIDGE BIOPHARMA-2018-STR-000047

PATIENT
  Sex: Female
  Weight: 79.37 kg

DRUGS (5)
  1. LEVOTHYROXINE. [Concomitant]
     Active Substance: LEVOTHYROXINE
     Dosage: 75 MG, QD
  2. LOTREL                             /01388302/ [Concomitant]
     Active Substance: LOTEPREDNOL ETABONATE
     Dosage: 40 MG, QD
  3. VITAMIN D                          /00107901/ [Concomitant]
     Active Substance: ERGOCALCIFEROL
     Dosage: 50 K 9X/WK
  4. KEVEYIS [Suspect]
     Active Substance: DICHLORPHENAMIDE
     Indication: HEMIPLEGIC MIGRAINE
     Dosage: 50 MG, BID
     Route: 048
     Dates: start: 20171201, end: 20180321
  5. NASCOBAL [Concomitant]
     Active Substance: CYANOCOBALAMIN
     Dosage: 1 SPRAY 1X/WK

REACTIONS (8)
  - Chest discomfort [Not Recovered/Not Resolved]
  - Drug ineffective for unapproved indication [Unknown]
  - Feeling abnormal [Not Recovered/Not Resolved]
  - Tinnitus [Not Recovered/Not Resolved]
  - Off label use [Unknown]
  - Swollen tongue [Not Recovered/Not Resolved]
  - Dizziness [Not Recovered/Not Resolved]
  - Fatigue [Unknown]

NARRATIVE: CASE EVENT DATE: 20180208
